FAERS Safety Report 4360327-9 (Version None)
Quarter: 2004Q2

REPORT INFORMATION
  Report Type: 
  Country: None (occurrence: None)
  Receive Date: 20040517
  Receipt Date: 20040429
  Transmission Date: 20050107
  Serious: Yes (Other)
  Sender: FDA-Public Use
  Company Number: A-US2004-06044

PATIENT
  Age: 58 Year
  Sex: Female

DRUGS (7)
  1. TRACLEER [Suspect]
     Indication: PULMONARY HYPERTENSION
     Dosage: SEE IMAGE
     Route: 048
     Dates: end: 20020612
  2. TRACLEER [Suspect]
     Indication: PULMONARY HYPERTENSION
     Dosage: SEE IMAGE
     Route: 048
     Dates: start: 20020509
  3. FLOLAN [Concomitant]
  4. LASIX [Concomitant]
  5. LANOXIN [Concomitant]
  6. HYDROXYUREA [Concomitant]
  7. FOLIC ACID [Concomitant]

REACTIONS (2)
  - DYSPNOEA [None]
  - PAIN [None]
